FAERS Safety Report 17820889 (Version 4)
Quarter: 2020Q3

REPORT INFORMATION
  Report Type: Spontaneous
  Country: CA (occurrence: CA)
  Receive Date: 20200525
  Receipt Date: 20200714
  Transmission Date: 20201102
  Serious: Yes (Other)
  Sender: FDA-Public Use
  Company Number: CA-PFIZER INC-2020053973

PATIENT
  Age: 70 Year
  Sex: Male

DRUGS (3)
  1. XELJANZ [Suspect]
     Active Substance: TOFACITINIB CITRATE
     Indication: COLITIS ULCERATIVE
     Dosage: 10 MG, 2X/DAY
     Route: 048
     Dates: start: 20200124, end: 202003
  2. CORTISONE [Concomitant]
     Active Substance: CORTISONE
     Indication: COLITIS ULCERATIVE
     Dosage: UNK
     Route: 054
  3. XELJANZ [Suspect]
     Active Substance: TOFACITINIB CITRATE
     Dosage: 5 MG, 2X/DAY
     Route: 048
     Dates: start: 202003

REACTIONS (4)
  - Condition aggravated [Unknown]
  - Lung cancer metastatic [Unknown]
  - Dysphonia [Unknown]
  - Back pain [Unknown]

NARRATIVE: CASE EVENT DATE: 2020
